FAERS Safety Report 6294747-2 (Version None)
Quarter: 2009Q3

REPORT INFORMATION
  Report Type: 
  Country: None (occurrence: None)
  Receive Date: 20090731
  Receipt Date: 20090731
  Transmission Date: 20100115
  Serious: No
  Sender: FDA-Public Use
  Company Number: None

PATIENT
  Sex: Female
  Weight: 58.9676 kg

DRUGS (2)
  1. GABAPENTIN [Suspect]
     Indication: INSOMNIA
     Dosage: 900MG 1 / DAY PO
     Route: 048
     Dates: start: 20090120, end: 20090124
  2. GABAPENTIN [Suspect]
     Indication: INSOMNIA
     Dosage: 900MG 1 / DAY PO
     Route: 048
     Dates: start: 20090411, end: 20090411

REACTIONS (1)
  - ABDOMINAL DISCOMFORT [None]
